FAERS Safety Report 13902433 (Version 1)
Quarter: 2017Q3

REPORT INFORMATION
  Report Type: Spontaneous
  Country: AU (occurrence: AU)
  Receive Date: 20170824
  Receipt Date: 20170824
  Transmission Date: 20171127
  Serious: Yes (Other)
  Sender: FDA-Public Use
  Company Number: AU-ROCHE-1978706

PATIENT
  Sex: Male

DRUGS (1)
  1. VALIUM [Suspect]
     Active Substance: DIAZEPAM
     Indication: PRODUCT USED FOR UNKNOWN INDICATION
     Route: 065

REACTIONS (11)
  - Contusion [Unknown]
  - Depression [Unknown]
  - Crying [Unknown]
  - Laceration [Unknown]
  - Fear [Unknown]
  - Feeling guilty [Unknown]
  - Suicide attempt [Unknown]
  - Stress [Unknown]
  - Paraesthesia [Unknown]
  - Adverse drug reaction [Unknown]
  - Emotional distress [Unknown]
